FAERS Safety Report 9426110 (Version 2)
Quarter: 2013Q3

REPORT INFORMATION
  Report Type: Spontaneous
  Country: US (occurrence: US)
  Receive Date: 20130730
  Receipt Date: 20130927
  Transmission Date: 20140515
  Serious: No
  Sender: FDA-Public Use
  Company Number: US-BIOGENIDEC-2013BI068814

PATIENT
  Age: 51 Year
  Sex: Female

DRUGS (2)
  1. TYSABRI [Suspect]
     Indication: MULTIPLE SCLEROSIS
     Route: 042
     Dates: start: 20120410
  2. AVONEX [Concomitant]
     Indication: MULTIPLE SCLEROSIS
     Route: 030
     Dates: start: 19980501

REACTIONS (6)
  - Vein disorder [Recovered/Resolved]
  - Central venous catheterisation [Recovered/Resolved]
  - Muscle spasms [Recovered/Resolved]
  - Drug effect decreased [Recovered/Resolved]
  - Infusion site bruising [Recovered/Resolved]
  - Fatigue [Recovered/Resolved]
